FAERS Safety Report 8388278-3 (Version None)
Quarter: 2012Q2

REPORT INFORMATION
  Report Type: 
  Country: None (occurrence: None)
  Receive Date: 20120525
  Receipt Date: 20120524
  Transmission Date: 20120825
  Serious: Yes (Death, Hospitalization)
  Sender: FDA-Public Use
  Company Number: PHHY2012PT044500

PATIENT
  Age: 81 Year
  Sex: Male

DRUGS (2)
  1. ACETYLSALICYLIC ACID SRT [Suspect]
     Indication: MYOCARDIAL INFARCTION
     Dosage: 100 MG, DAILY
  2. CLOPIDOGREL [Suspect]
     Indication: MYOCARDIAL INFARCTION
     Dosage: 75 MG, UNK

REACTIONS (6)
  - SLOW RESPONSE TO STIMULI [None]
  - CEREBRAL HAEMORRHAGE [None]
  - HEADACHE [None]
  - SUBDURAL HAEMATOMA [None]
  - HEAD INJURY [None]
  - ROAD TRAFFIC ACCIDENT [None]
